FAERS Safety Report 7960084-0 (Version None)
Quarter: 2011Q4

REPORT INFORMATION
  Report Type: 
  Country: None (occurrence: None)
  Receive Date: 20111206
  Receipt Date: 20111129
  Transmission Date: 20120403
  Serious: Yes (Other)
  Sender: FDA-Public Use
  Company Number: PHEH2011US010380

PATIENT
  Sex: Male

DRUGS (3)
  1. SINGULAIR [Concomitant]
  2. TRILEPTAL [Suspect]
     Dosage: 600 MG, 2XDAY
  3. ALBUTEROL [Concomitant]
     Indication: ASTHMA

REACTIONS (5)
  - LIGAMENT INJURY [None]
  - HALO VISION [None]
  - SOMNOLENCE [None]
  - HEADACHE [None]
  - LIMB INJURY [None]
